FAERS Safety Report 7347379-9 (Version None)
Quarter: 2011Q1

REPORT INFORMATION
  Report Type: 
  Country: None (occurrence: None)
  Receive Date: 20110311
  Receipt Date: 20110304
  Transmission Date: 20110831
  Serious: Yes (Other)
  Sender: FDA-Public Use
  Company Number: US-ROCHE-763854

PATIENT
  Sex: Female

DRUGS (1)
  1. BONIVA [Suspect]
     Dosage: ROUTE-INFUSION
     Route: 065

REACTIONS (2)
  - RHEUMATOID ARTHRITIS [None]
  - INFUSION RELATED REACTION [None]
